FAERS Safety Report 4984263-X (Version None)
Quarter: 2006Q2

REPORT INFORMATION
  Report Type: 
  Country: None (occurrence: None)
  Receive Date: 20060420
  Receipt Date: 20060404
  Transmission Date: 20061013
  Serious: Yes (Hospitalization)
  Sender: FDA-Public Use
  Company Number: DSA_27985_2006

PATIENT
  Age: 68 Year
  Sex: Male

DRUGS (17)
  1. ENALAPRIL MALEATE [Suspect]
     Dosage: DF
     Dates: start: 19960101, end: 20051215
  2. CYCLOPHOSPHAMIDE [Suspect]
     Indication: CHRONIC LYMPHOCYTIC LEUKAEMIA
     Dosage: 300 MG Q DAY PO
     Route: 048
     Dates: start: 20050609, end: 20050613
  3. CYCLOPHOSPHAMIDE [Suspect]
     Indication: CHRONIC LYMPHOCYTIC LEUKAEMIA
     Dosage: 300 MG Q DAY PO
     Route: 048
     Dates: start: 20050709, end: 20050713
  4. CYCLOPHOSPHAMIDE [Suspect]
     Indication: CHRONIC LYMPHOCYTIC LEUKAEMIA
     Dosage: 300 MG Q DAY PO
     Route: 048
     Dates: start: 20050809, end: 20050813
  5. CYCLOPHOSPHAMIDE [Suspect]
     Indication: CHRONIC LYMPHOCYTIC LEUKAEMIA
     Dosage: 300 MG Q DAY PO
     Route: 048
     Dates: start: 20050909, end: 20050913
  6. CYCLOPHOSPHAMIDE [Suspect]
     Indication: CHRONIC LYMPHOCYTIC LEUKAEMIA
     Dosage: DF
     Dates: start: 20060101, end: 20060101
  7. FLUDARABINE PHOSPHATE [Suspect]
     Indication: CHRONIC LYMPHOCYTIC LEUKAEMIA
     Dosage: 50 MG Q DAY PO
     Route: 048
     Dates: start: 20050609, end: 20050613
  8. FLUDARABINE PHOSPHATE [Suspect]
     Indication: CHRONIC LYMPHOCYTIC LEUKAEMIA
     Dosage: 50 MG Q DAY PO
     Route: 048
     Dates: start: 20050709, end: 20050713
  9. FLUDARABINE PHOSPHATE [Suspect]
     Indication: CHRONIC LYMPHOCYTIC LEUKAEMIA
     Dosage: 50 MG Q DAY PO
     Route: 048
     Dates: start: 20050809, end: 20050813
  10. FLUDARABINE PHOSPHATE [Suspect]
     Indication: CHRONIC LYMPHOCYTIC LEUKAEMIA
     Dosage: 50 MG Q DAY PO
     Route: 048
     Dates: start: 20050909, end: 20050913
  11. RITUXIMAB [Suspect]
     Indication: CHRONIC LYMPHOCYTIC LEUKAEMIA
     Dosage: 700 MG Q DAY SC
     Route: 058
     Dates: start: 20050609, end: 20050609
  12. RITUXIMAB [Suspect]
     Indication: CHRONIC LYMPHOCYTIC LEUKAEMIA
     Dosage: 700 MG Q DAY SC
     Route: 058
     Dates: start: 20050709, end: 20050709
  13. RITUXIMAB [Suspect]
     Indication: CHRONIC LYMPHOCYTIC LEUKAEMIA
     Dosage: 700 MG Q DAY SC
     Route: 058
     Dates: start: 20050809, end: 20050809
  14. RITUXIMAB [Suspect]
     Indication: CHRONIC LYMPHOCYTIC LEUKAEMIA
     Dosage: 700 MG Q DAY SC
     Route: 058
     Dates: start: 20050909, end: 20050909
  15. RITUXIMAB [Suspect]
     Indication: CHRONIC LYMPHOCYTIC LEUKAEMIA
     Dosage: DF
     Dates: start: 20050101, end: 20060101
  16. PENICILLIN V [Concomitant]
  17. SULFAMETHOXAZOLE + TRIMETHOPRIM [Concomitant]

REACTIONS (17)
  - BRONCHIECTASIS [None]
  - C-REACTIVE PROTEIN INCREASED [None]
  - COUGH [None]
  - DRUG HYPERSENSITIVITY [None]
  - DRUG INEFFECTIVE [None]
  - DYSPNOEA [None]
  - EOSINOPHILIA [None]
  - HAEMOGLOBIN DECREASED [None]
  - LIVEDO RETICULARIS [None]
  - LYMPHOCYTE COUNT DECREASED [None]
  - MONOCYTE COUNT INCREASED [None]
  - NEUTROPHIL COUNT DECREASED [None]
  - OBSTRUCTIVE AIRWAYS DISORDER [None]
  - PLATELET COUNT DECREASED [None]
  - PNEUMONIA RESPIRATORY SYNCYTIAL VIRAL [None]
  - PURPURA [None]
  - WEIGHT DECREASED [None]
